FAERS Safety Report 14713619 (Version 2)
Quarter: 2018Q2

REPORT INFORMATION
  Report Type: Spontaneous
  Country: DE (occurrence: DE)
  Receive Date: 20180404
  Receipt Date: 20180625
  Transmission Date: 20180711
  Serious: Yes (Hospitalization)
  Sender: FDA-Public Use
  Company Number: DE-AUROBINDO-AUR-APL-2018-018385

PATIENT
  Age: 71 Year
  Sex: Male
  Weight: 80 kg

DRUGS (5)
  1. SYMBICORT [Concomitant]
     Active Substance: BUDESONIDE\FORMOTEROL FUMARATE DIHYDRATE
     Indication: PRODUCT USED FOR UNKNOWN INDICATION
     Dosage: DAILY DOSE: 2 DF DOSAGE FORM EVERY DAYS
     Route: 055
  2. RAMIPRIL. [Suspect]
     Active Substance: RAMIPRIL
     Indication: HYPERTENSION
     Dosage: DAILY DOSE: 2.5 MG MILLGRAM(S) EVERY DAYS
     Route: 048
     Dates: start: 20180227, end: 20180306
  3. IBUPROFEN. [Suspect]
     Active Substance: IBUPROFEN
     Indication: PAIN
     Dosage: DAILY DOSE: 1200 MG MILLGRAM(S) EVERY DAYS
     Route: 048
     Dates: end: 20180306
  4. PANTOZOL [Concomitant]
     Active Substance: PANTOPRAZOLE SODIUM
     Indication: PRODUCT USED FOR UNKNOWN INDICATION
     Dosage: DAILY DOSE: 20 MG MILLGRAM(S) EVERY DAYS
     Route: 048
  5. GALANTAMIN [Suspect]
     Active Substance: GALANTAMINE
     Indication: DEMENTIA
     Dosage: DAILY DOSE: 16 MG MILLGRAM(S) EVERY DAYS
     Route: 048
     Dates: end: 20180306

REACTIONS (3)
  - Stevens-Johnson syndrome [Recovered/Resolved]
  - Rhabdomyolysis [Recovered/Resolved]
  - Leukopenia [Recovered/Resolved]

NARRATIVE: CASE EVENT DATE: 20180303
